FAERS Safety Report 16695675 (Version 1)
Quarter: 2019Q3

REPORT INFORMATION
  Report Type: Spontaneous
  Country: US (occurrence: US)
  Receive Date: 20190813
  Receipt Date: 20190813
  Transmission Date: 20191004
  Serious: Yes (Death, Life-Threatening, Hospitalization, Other)
  Sender: FDA-Public Use
  Company Number: US-GLENMARK PHARMACEUTICALS-2019GMK042516

PATIENT
  Age: 58 Year
  Sex: Male

DRUGS (2)
  1. DAPSONE. [Suspect]
     Active Substance: DAPSONE
     Indication: PROPHYLAXIS
     Dosage: 100 MG, OD
     Route: 065
  2. SULFAMETHOXAZOLE/TRIMETHOPRIM [Suspect]
     Active Substance: SULFAMETHOXAZOLE\TRIMETHOPRIM
     Indication: PROPHYLAXIS
     Dosage: 1 DF, OD
     Route: 065

REACTIONS (13)
  - Lymphoma [Unknown]
  - Hepatotoxicity [Unknown]
  - Drug-induced liver injury [Unknown]
  - Vanishing bile duct syndrome [Unknown]
  - Hepatorenal syndrome [Fatal]
  - Therapeutic product cross-reactivity [Unknown]
  - Hepatic fibrosis [Unknown]
  - Multiple organ dysfunction syndrome [Fatal]
  - Hypotension [Unknown]
  - Pancreatic atrophy [Unknown]
  - Cholestasis [Unknown]
  - Hepatic steatosis [Unknown]
  - Renal failure [Unknown]
